FAERS Safety Report 5166836-7 (Version None)
Quarter: 2006Q4

REPORT INFORMATION
  Report Type: 
  Country: None (occurrence: None)
  Receive Date: 20061129
  Receipt Date: 20061117
  Transmission Date: 20070319
  Serious: Yes (Other)
  Sender: FDA-Public Use
  Company Number: 2006144341

PATIENT
  Age: 41 Year
  Sex: Female

DRUGS (2)
  1. CELEBREX [Suspect]
     Indication: BREAST CANCER
     Dosage: 800 MG (1 IN 1 D), ORAL
     Route: 048
     Dates: start: 20061006, end: 20061018
  2. TAXOTERE [Suspect]
     Dates: start: 20061006

REACTIONS (2)
  - BALANCE DISORDER [None]
  - DIZZINESS [None]
